FAERS Safety Report 22197972 (Version 2)
Quarter: 2023Q2

REPORT INFORMATION
  Report Type: Report from Study
  Country: US (occurrence: US)
  Receive Date: 20230411
  Receipt Date: 20230414
  Transmission Date: 20230722
  Serious: Yes (Life-Threatening)
  Sender: FDA-Public Use
  Company Number: US-002147023-NVSC2023US077412

PATIENT
  Age: 69 Year
  Sex: Male
  Weight: 90.4 kg

DRUGS (8)
  1. INCLISIRAN [Suspect]
     Active Substance: INCLISIRAN
     Indication: Cardiovascular event prophylaxis
     Dosage: CODE NOT BROKEN
     Route: 058
     Dates: start: 20220705
  2. INVESTIGATIONAL PRODUCT [Suspect]
     Active Substance: INVESTIGATIONAL PRODUCT
     Indication: Cardiovascular event prophylaxis
     Dosage: CODE NOT BROKEN
     Route: 058
     Dates: start: 20220705
  3. PLACEBO [Suspect]
     Active Substance: UNSPECIFIED INGREDIENT
     Indication: Cardiovascular event prophylaxis
     Dosage: CODE NOT BROKEN
     Route: 058
     Dates: start: 20220705
  4. METOPROLOL [Concomitant]
     Active Substance: METOPROLOL
     Indication: Hypertension
     Dosage: UNK
     Route: 065
     Dates: start: 1997
  5. CYCLOBENZAPRINE [Concomitant]
     Active Substance: CYCLOBENZAPRINE
     Indication: Rotator cuff syndrome
     Dosage: UNK
     Route: 065
     Dates: start: 2018
  6. MELOXICAM [Concomitant]
     Active Substance: MELOXICAM
     Indication: Rotator cuff syndrome
     Dosage: UNK
     Route: 065
     Dates: start: 2018
  7. ROSUVASTATIN [Concomitant]
     Active Substance: ROSUVASTATIN
     Indication: Blood cholesterol increased
     Dosage: UNK
     Route: 065
     Dates: start: 2018
  8. DICLOFENAC [Concomitant]
     Active Substance: DICLOFENAC
     Indication: Osteoarthritis
     Dosage: UNK
     Route: 065
     Dates: start: 2021

REACTIONS (1)
  - Lacunar infarction [Recovered/Resolved]

NARRATIVE: CASE EVENT DATE: 20230116
